FAERS Safety Report 15815205 (Version 2)
Quarter: 2019Q1

REPORT INFORMATION
  Report Type: Report from Study
  Country: IT (occurrence: IT)
  Receive Date: 20190112
  Receipt Date: 20190216
  Transmission Date: 20190417
  Serious: Yes (Hospitalization, Other)
  Sender: FDA-Public Use
  Company Number: IT-ACCORD-101415

PATIENT
  Age: 83 Year
  Sex: Female

DRUGS (2)
  1. CLOZAPINE. [Suspect]
     Active Substance: CLOZAPINE
     Route: 048
     Dates: start: 20180206, end: 20180206
  2. LORAZEPAM. [Suspect]
     Active Substance: LORAZEPAM
     Route: 048
     Dates: start: 20180206, end: 20180206

REACTIONS (8)
  - Miosis [Recovering/Resolving]
  - Loss of consciousness [Recovering/Resolving]
  - Irregular breathing [Recovering/Resolving]
  - Hypertension [Recovering/Resolving]
  - Eye movement disorder [Recovering/Resolving]
  - Accidental exposure to product [Unknown]
  - Tachycardia [Recovering/Resolving]
  - Snoring [Recovering/Resolving]

NARRATIVE: CASE EVENT DATE: 20180206
